FAERS Safety Report 5946383-2 (Version None)
Quarter: 2008Q4

REPORT INFORMATION
  Report Type: 
  Country: None (occurrence: None)
  Receive Date: 20081110
  Receipt Date: 20081107
  Transmission Date: 20090506
  Serious: Yes (Life-Threatening, Hospitalization)
  Sender: FDA-Public Use
  Company Number: IN-EISAI MEDICAL RESEARCH-E2020-03265-CLI-IN

PATIENT
  Sex: Female
  Weight: 40 kg

DRUGS (7)
  1. E2020-SR [Suspect]
     Indication: DEMENTIA ALZHEIMER'S TYPE
     Route: 048
     Dates: start: 20080611, end: 20080817
  2. E2020-SR [Suspect]
     Route: 048
     Dates: start: 20080819, end: 20080823
  3. QUETIAPINE FUMARATE [Concomitant]
     Indication: ABNORMAL BEHAVIOUR
     Route: 048
     Dates: start: 20080208, end: 20080819
  4. QUETIAPINE FUMARATE [Concomitant]
     Route: 048
     Dates: start: 20080820
  5. ASPIRIN [Concomitant]
     Indication: HYPERTENSION
     Route: 048
     Dates: start: 20080208
  6. CITALOPRAM HYDROBROMIDE [Concomitant]
     Indication: DEPRESSION
     Route: 048
     Dates: start: 20080702
  7. METRONIDAZOLE [Concomitant]
     Indication: DIARRHOEA
     Route: 048
     Dates: start: 20080702, end: 20080707

REACTIONS (1)
  - SUICIDE ATTEMPT [None]
